FAERS Safety Report 25204516 (Version 1)
Quarter: 2025Q2

REPORT INFORMATION
  Report Type: Spontaneous
  Country: US (occurrence: US)
  Receive Date: 20250416
  Receipt Date: 20250416
  Transmission Date: 20250717
  Serious: Yes (Other)
  Sender: NOVARTIS
  Company Number: US-002147023-NVSC2025US061437

PATIENT
  Sex: Female

DRUGS (2)
  1. ENTRESTO [Suspect]
     Active Substance: SACUBITRIL\VALSARTAN
     Indication: Product used for unknown indication
     Route: 048
  2. AMIODARONE [Suspect]
     Active Substance: AMIODARONE
     Indication: Product used for unknown indication
     Route: 065
     Dates: end: 2021

REACTIONS (9)
  - Bilirubin excretion disorder [Unknown]
  - Faeces discoloured [Unknown]
  - Pulmonary fibrosis [Unknown]
  - Metabolic dysfunction-associated liver disease [Unknown]
  - Nausea [Unknown]
  - Blood urea abnormal [Unknown]
  - Gastrointestinal disorder [Unknown]
  - Insomnia [Unknown]
  - Wrong technique in product usage process [Unknown]
